FAERS Safety Report 21960353 (Version 1)
Quarter: 2023Q1

REPORT INFORMATION
  Report Type: Spontaneous
  Country: US (occurrence: US)
  Receive Date: 20230207
  Receipt Date: 20230207
  Transmission Date: 20230417
  Serious: Yes (Other)
  Sender: FDA-Public Use
  Company Number: US-AVET LIFESCIENCES LTD-2023-AVET-000034

PATIENT

DRUGS (1)
  1. SULFAMETHOXAZOLE\TRIMETHOPRIM [Suspect]
     Active Substance: SULFAMETHOXAZOLE\TRIMETHOPRIM
     Indication: Infection
     Dosage: UNK

REACTIONS (4)
  - Conjunctivitis [Recovered/Resolved]
  - Lymphopenia [Recovered/Resolved]
  - Rash [Recovered/Resolved]
  - Haemodynamic instability [Recovered/Resolved]
